FAERS Safety Report 9433955 (Version 2)
Quarter: 2013Q3

REPORT INFORMATION
  Report Type: Spontaneous
  Country: ES (occurrence: ES)
  Receive Date: 20130801
  Receipt Date: 20130807
  Transmission Date: 20140515
  Serious: Yes (Other)
  Sender: FDA-Public Use
  Company Number: ES-AMGEN-ESPSP2013052456

PATIENT
  Age: 68 Year
  Sex: Female
  Weight: 65 kg

DRUGS (1)
  1. PROLIA [Suspect]
     Indication: PRODUCT USED FOR UNKNOWN INDICATION
     Dosage: UNK UNK, Q6MO
     Route: 065
     Dates: start: 201305

REACTIONS (7)
  - Uveitis [Unknown]
  - Blindness [Unknown]
  - Eye pain [Unknown]
  - Visual impairment [Not Recovered/Not Resolved]
  - Visual acuity reduced [Unknown]
  - Vision blurred [Unknown]
  - Cataract [Unknown]
